FAERS Safety Report 15321299 (Version 1)
Quarter: 2018Q3

REPORT INFORMATION
  Report Type: Spontaneous
  Country: US (occurrence: US)
  Receive Date: 20180827
  Receipt Date: 20180827
  Transmission Date: 20181010
  Serious: No
  Sender: FDA-Public Use
  Company Number: US-SA-2018SA235992

PATIENT
  Age: 72 Year
  Sex: Female

DRUGS (1)
  1. LUMIZYME [Suspect]
     Active Substance: ALGLUCOSIDASE ALFA
     Indication: GLYCOGEN STORAGE DISEASE TYPE II
     Dosage: FLEXES FROM 1100 MG TO 1300
     Route: 041
     Dates: start: 20120718, end: 20170405

REACTIONS (1)
  - Malaise [Unknown]
